FAERS Safety Report 21836643 (Version 3)
Quarter: 2023Q2

REPORT INFORMATION
  Report Type: Spontaneous
  Country: GB (occurrence: GB)
  Receive Date: 20230109
  Receipt Date: 20230418
  Transmission Date: 20230722
  Serious: Yes (Hospitalization)
  Sender: FDA-Public Use
  Company Number: GB-MYLANLABS-2023M1001055

PATIENT
  Age: 49 Year
  Sex: Male

DRUGS (1)
  1. CLOZARIL [Suspect]
     Active Substance: CLOZAPINE
     Indication: Schizophrenia
     Dosage: UNK
     Route: 048
     Dates: start: 20111122

REACTIONS (7)
  - Schizophrenia [Unknown]
  - Blood iron decreased [Unknown]
  - Glomerular filtration rate decreased [Unknown]
  - Transferrin saturation decreased [Unknown]
  - Haematocrit decreased [Unknown]
  - Vitamin B12 increased [Unknown]
  - Red blood cell count decreased [Unknown]

NARRATIVE: CASE EVENT DATE: 20230104
